FAERS Safety Report 5645609-2 (Version None)
Quarter: 2008Q1

REPORT INFORMATION
  Report Type: 
  Country: None (occurrence: None)
  Receive Date: 20080229
  Receipt Date: 20080225
  Transmission Date: 20080703
  Serious: Yes (Hospitalization)
  Sender: FDA-Public Use
  Company Number: US-GENENTECH-255698

PATIENT
  Sex: Male
  Weight: 112.7 kg

DRUGS (3)
  1. BEVACIZUMAB [Suspect]
     Indication: NON-SMALL CELL LUNG CANCER
     Dosage: 1656 MG, Q3W
     Route: 042
     Dates: start: 20071002
  2. CISPLATIN [Suspect]
     Indication: NON-SMALL CELL LUNG CANCER
     Dosage: 180 MG, Q3W
     Route: 042
     Dates: start: 20071002
  3. DOCETAXEL [Suspect]
     Indication: NON-SMALL CELL LUNG CANCER
     Dosage: 180 MG, Q3W
     Route: 042
     Dates: start: 20071002

REACTIONS (1)
  - CONVULSION [None]
